FAERS Safety Report 5273533-6 (Version None)
Quarter: 2007Q1

REPORT INFORMATION
  Report Type: 
  Country: None (occurrence: None)
  Receive Date: 20070321
  Receipt Date: 20070321
  Transmission Date: 20070707
  Serious: Yes (Other)
  Sender: FDA-Public Use
  Company Number: None

PATIENT
  Age: 50 Year
  Sex: Male
  Weight: 86.1834 kg

DRUGS (8)
  1. ALORA [Suspect]
     Indication: HORMONE REPLACEMENT THERAPY
     Dosage: 1 PATCH TWICE WEEKLY AT LEAST 2 YEARS
  2. CARDIZEM [Concomitant]
  3. BENICAR HCT [Concomitant]
  4. LEXAPRO [Concomitant]
  5. ASPIRIN [Concomitant]
  6. LUNETSA [Concomitant]
  7. CLONAZEPAM [Concomitant]
  8. PRILOSEC [Concomitant]

REACTIONS (2)
  - BLISTER [None]
  - DRUG EFFECT DECREASED [None]
